FAERS Safety Report 11056256 (Version 2)
Quarter: 2015Q2

REPORT INFORMATION
  Report Type: Spontaneous
  Country: DE (occurrence: DE)
  Receive Date: 20150422
  Receipt Date: 20150526
  Transmission Date: 20150821
  Serious: Yes (Other)
  Sender: FDA-Public Use
  Company Number: DE-ASTRAZENECA-2015SE35614

PATIENT
  Age: 16 Year
  Sex: Female

DRUGS (1)
  1. SEROQUEL [Suspect]
     Active Substance: QUETIAPINE FUMARATE
     Route: 048

REACTIONS (3)
  - Pancreatitis acute [Not Recovered/Not Resolved]
  - Weight increased [Not Recovered/Not Resolved]
  - Blood triglycerides increased [Recovering/Resolving]
